FAERS Safety Report 20407025 (Version 1)
Quarter: 2022Q1

REPORT INFORMATION
  Report Type: Spontaneous
  Country: US (occurrence: None)
  Receive Date: 20220131
  Receipt Date: 20220131
  Transmission Date: 20220423
  Serious: Yes (Hospitalization)
  Sender: FDA-Public Use
  Company Number: None

PATIENT
  Age: 88 Year
  Sex: Female
  Weight: 60 kg

DRUGS (3)
  1. BARICITINIB [Suspect]
     Active Substance: BARICITINIB
     Indication: COVID-19
     Dosage: FREQUENCY : DAILY;?
     Route: 048
     Dates: start: 20220123, end: 20220130
  2. APIXABAN [Concomitant]
     Dates: start: 20220117, end: 20220130
  3. Aspirin [Concomitant]
     Dates: start: 20220113, end: 20220130

REACTIONS (2)
  - Faeces discoloured [None]
  - Gastrointestinal perforation [None]

NARRATIVE: CASE EVENT DATE: 20220130
